FAERS Safety Report 11410764 (Version 2)
Quarter: 2015Q4

REPORT INFORMATION
  Report Type: Spontaneous
  Country: US (occurrence: US)
  Receive Date: 20150824
  Receipt Date: 20151113
  Transmission Date: 20160304
  Serious: Yes (Hospitalization)
  Sender: FDA-Public Use
  Company Number: US-SA-2015SA126356

PATIENT
  Age: 54 Year
  Sex: Female
  Weight: 96.16 kg

DRUGS (14)
  1. ASPIRIN. [Concomitant]
     Active Substance: ASPIRIN
     Dates: start: 1994
  2. AMLODIPINE [Concomitant]
     Active Substance: AMLODIPINE BESYLATE
  3. LANTUS [Suspect]
     Active Substance: INSULIN GLARGINE
     Indication: DIABETES MELLITUS
     Route: 065
  4. NOVOLOG [Suspect]
     Active Substance: INSULIN ASPART
     Dosage: 40 U AT BREAKFAST, 37 U AT LUNCH, AND 37 U AT DINNER
     Route: 065
     Dates: start: 201507
  5. LIPITOR [Concomitant]
     Active Substance: ATORVASTATIN CALCIUM
  6. CALCIUM CARBONATE. [Concomitant]
     Active Substance: CALCIUM CARBONATE
  7. LANTUS [Suspect]
     Active Substance: INSULIN GLARGINE
     Indication: DIABETES MELLITUS
     Dosage: DOSE:90 UNIT(S)
     Route: 065
     Dates: start: 201507
  8. VITAMIN B COMPLEX [Concomitant]
     Active Substance: CYANOCOBALAMIN\DEXPANTHENOL\NIACINAMIDE\PYRIDOXINE HYDROCHLORIDE\RIBOFLAVIN 5^-PHOSPHATE SODIUM\THIAMINE HYDROCHLORIDE\VITAMIN B COMPLEX
  9. LISINOPRIL. [Concomitant]
     Active Substance: LISINOPRIL
  10. FLEXPEN [Concomitant]
     Active Substance: UNSPECIFIED INGREDIENT
  11. NOVOLOG [Suspect]
     Active Substance: INSULIN ASPART
     Route: 065
  12. METFORMIN [Concomitant]
     Active Substance: METFORMIN HYDROCHLORIDE
     Dates: start: 1994
  13. VICTOZA [Concomitant]
     Active Substance: LIRAGLUTIDE
  14. SOLOSTAR [Concomitant]
     Active Substance: DEVICE

REACTIONS (4)
  - Blood glucose increased [Not Recovered/Not Resolved]
  - Dehydration [Recovered/Resolved]
  - Blood magnesium decreased [Not Recovered/Not Resolved]
  - Stress [Unknown]

NARRATIVE: CASE EVENT DATE: 201505
